FAERS Safety Report 5261913-4 (Version None)
Quarter: 2007Q1

REPORT INFORMATION
  Report Type: 
  Country: None (occurrence: None)
  Receive Date: 20070310
  Receipt Date: 20070228
  Transmission Date: 20070707
  Serious: Yes (Hospitalization)
  Sender: FDA-Public Use
  Company Number: 2006UW07838

PATIENT
  Age: 26 Year
  Sex: Female
  Weight: 103.6 kg

DRUGS (3)
  1. SEROQUEL [Suspect]
     Indication: BIPOLAR DISORDER
     Route: 048
     Dates: start: 20000501, end: 20060301
  2. SEROQUEL [Suspect]
     Indication: DEPRESSION
     Route: 048
     Dates: start: 20000501, end: 20060301
  3. RISPERDAL [Concomitant]
     Dates: start: 20060101

REACTIONS (2)
  - HEPATOCELLULAR DAMAGE [None]
  - PANCREATITIS [None]
